FAERS Safety Report 8725101 (Version 4)
Quarter: 2013Q3

REPORT INFORMATION
  Report Type: Report from Study
  Country: US (occurrence: US)
  Receive Date: 20120815
  Receipt Date: 20130830
  Transmission Date: 20140515
  Serious: Yes (Hospitalization)
  Sender: FDA-Public Use
  Company Number: US-GLAXOSMITHKLINE-A0988831A

PATIENT
  Age: 46 Year
  Sex: Female
  Weight: 55.3 kg

DRUGS (5)
  1. LAPATINIB [Suspect]
     Indication: NEOPLASM
     Dosage: 1500MG PER DAY
     Route: 048
     Dates: start: 20120712
  2. GEMZAR [Suspect]
     Indication: NEOPLASM
     Dosage: 1000MGM2 PER DAY
     Route: 042
     Dates: start: 20120726
  3. K-TABS [Concomitant]
     Indication: HYPOKALAEMIA
     Dosage: 10MEQ THREE TIMES PER DAY
     Route: 048
     Dates: start: 20120726
  4. ALOXI [Concomitant]
     Indication: NAUSEA
     Dosage: .25MG WEEKLY
     Route: 042
     Dates: start: 20120726
  5. DEXAMETHASONE [Concomitant]
     Indication: THERAPEUTIC PROCEDURE
     Dosage: 10MG WEEKLY
     Route: 042
     Dates: start: 20120726

REACTIONS (4)
  - Vomiting [Recovered/Resolved with Sequelae]
  - Dehydration [Recovered/Resolved with Sequelae]
  - Dehydration [Recovered/Resolved]
  - Vomiting [Recovered/Resolved]
